FAERS Safety Report 14003708 (Version 2)
Quarter: 2018Q2

REPORT INFORMATION
  Report Type: Spontaneous
  Country: US (occurrence: US)
  Receive Date: 20170922
  Receipt Date: 20180528
  Transmission Date: 20180711
  Serious: No
  Sender: FDA-Public Use
  Company Number: US-JNJFOC-20170628057

PATIENT
  Sex: Male
  Weight: 85.28 kg

DRUGS (12)
  1. PANCRELIPASE. [Suspect]
     Active Substance: PANCRELIPASE
     Indication: PANCREATITIS
     Route: 048
     Dates: start: 1997, end: 2010
  2. NASCOBAL [Concomitant]
     Active Substance: CYANOCOBALAMIN
     Route: 065
  3. CYMBALTA [Concomitant]
     Active Substance: DULOXETINE HYDROCHLORIDE
     Indication: NEUROPATHY PERIPHERAL
     Route: 065
  4. PRILOSEC [Concomitant]
     Active Substance: OMEPRAZOLE MAGNESIUM
     Route: 065
  5. ROCEFIN [Concomitant]
     Active Substance: CEFTRIAXONE SODIUM
     Indication: ANTIBIOTIC THERAPY
     Route: 065
  6. NASCOBAL [Concomitant]
     Active Substance: CYANOCOBALAMIN
     Route: 065
  7. POTASSIUM [Concomitant]
     Active Substance: POTASSIUM
     Route: 065
  8. ACIPHEX [Concomitant]
     Active Substance: RABEPRAZOLE SODIUM
     Indication: GASTROOESOPHAGEAL REFLUX DISEASE
     Route: 065
  9. OXYCODONE [Concomitant]
     Active Substance: OXYCODONE
     Route: 065
     Dates: end: 2006
  10. OXYCONTIN [Concomitant]
     Active Substance: OXYCODONE HYDROCHLORIDE
     Route: 065
     Dates: end: 2007
  11. ZITHROMAX [Concomitant]
     Active Substance: AZITHROMYCIN DIHYDRATE
     Indication: ANTIBIOTIC THERAPY
     Route: 065
  12. DURAGESIC [Suspect]
     Active Substance: FENTANYL
     Indication: PAIN
     Route: 062
     Dates: start: 2006

REACTIONS (7)
  - Pain [Unknown]
  - Expired product administered [Unknown]
  - Weight fluctuation [Unknown]
  - Drug dose omission [Unknown]
  - Product physical issue [Unknown]
  - Drug ineffective [Unknown]
  - Visual impairment [Unknown]

NARRATIVE: CASE EVENT DATE: 1997
